FAERS Safety Report 5758687-7 (Version None)
Quarter: 2008Q2

REPORT INFORMATION
  Report Type: 
  Country: None (occurrence: None)
  Receive Date: 20080507
  Receipt Date: 20070711
  Transmission Date: 20081010
  Serious: Yes (Hospitalization)
  Sender: FDA-Public Use
  Company Number: 235732K07USA

PATIENT
  Age: 49 Year
  Sex: Male

DRUGS (1)
  1. REBIF [Suspect]
     Indication: MULTIPLE SCLEROSIS
     Dosage: 44 MCG, 3 IN 1 WEEKS, SUBCUTANEOUS
     Route: 058
     Dates: start: 20030101, end: 20061101

REACTIONS (3)
  - ASTHENIA [None]
  - MULTIPLE SCLEROSIS RELAPSE [None]
  - MUSCULAR WEAKNESS [None]
